FAERS Safety Report 6596059-6 (Version None)
Quarter: 2010Q1

REPORT INFORMATION
  Report Type: 
  Country: None (occurrence: None)
  Receive Date: 20100223
  Receipt Date: 20100219
  Transmission Date: 20100710
  Serious: Yes (Death)
  Sender: FDA-Public Use
  Company Number: PHHY2010BR10045

PATIENT
  Sex: Female

DRUGS (3)
  1. EXELON [Suspect]
     Dosage: 18MG/10CM2
     Route: 062
  2. DEPAKOTE [Concomitant]
  3. RISPERIDONE [Concomitant]

REACTIONS (1)
  - DEATH [None]
